FAERS Safety Report 25795544 (Version 1)
Quarter: 2025Q3

REPORT INFORMATION
  Report Type: Spontaneous
  Country: US (occurrence: US)
  Receive Date: 20250912
  Receipt Date: 20250912
  Transmission Date: 20251021
  Serious: Yes (Life-Threatening, Hospitalization)
  Sender: MYLAN
  Company Number: US-MYLANLABS-2025M1076408

PATIENT
  Age: 67 Year
  Sex: Female

DRUGS (20)
  1. NOREPINEPHRINE [Suspect]
     Active Substance: NOREPINEPHRINE
     Indication: Hypotension
  2. NOREPINEPHRINE [Suspect]
     Active Substance: NOREPINEPHRINE
  3. NOREPINEPHRINE [Suspect]
     Active Substance: NOREPINEPHRINE
     Route: 065
  4. NOREPINEPHRINE [Suspect]
     Active Substance: NOREPINEPHRINE
     Route: 065
  5. NOREPINEPHRINE [Suspect]
     Active Substance: NOREPINEPHRINE
  6. NOREPINEPHRINE [Suspect]
     Active Substance: NOREPINEPHRINE
  7. NOREPINEPHRINE [Suspect]
     Active Substance: NOREPINEPHRINE
     Route: 065
  8. NOREPINEPHRINE [Suspect]
     Active Substance: NOREPINEPHRINE
     Route: 065
  9. GLYCOPYRROLATE [Suspect]
     Active Substance: GLYCOPYRROLATE
     Indication: Bradycardia
  10. GLYCOPYRROLATE [Suspect]
     Active Substance: GLYCOPYRROLATE
     Route: 042
  11. GLYCOPYRROLATE [Suspect]
     Active Substance: GLYCOPYRROLATE
     Route: 042
  12. GLYCOPYRROLATE [Suspect]
     Active Substance: GLYCOPYRROLATE
  13. ENOXAPARIN [Concomitant]
     Active Substance: ENOXAPARIN
     Indication: Anticoagulant therapy
     Dosage: 40 MILLIGRAM, QD
  14. ENOXAPARIN [Concomitant]
     Active Substance: ENOXAPARIN
     Dosage: 40 MILLIGRAM, QD
     Route: 058
  15. ENOXAPARIN [Concomitant]
     Active Substance: ENOXAPARIN
     Dosage: 40 MILLIGRAM, QD
     Route: 058
  16. ENOXAPARIN [Concomitant]
     Active Substance: ENOXAPARIN
     Dosage: 40 MILLIGRAM, QD
  17. TRANEXAMIC ACID [Concomitant]
     Active Substance: TRANEXAMIC ACID
     Indication: Haemorrhage prophylaxis
  18. TRANEXAMIC ACID [Concomitant]
     Active Substance: TRANEXAMIC ACID
     Route: 065
  19. TRANEXAMIC ACID [Concomitant]
     Active Substance: TRANEXAMIC ACID
     Route: 065
  20. TRANEXAMIC ACID [Concomitant]
     Active Substance: TRANEXAMIC ACID

REACTIONS (1)
  - Drug ineffective [Unknown]
